FAERS Safety Report 12994457 (Version 1)
Quarter: 2016Q4

REPORT INFORMATION
  Report Type: Spontaneous
  Country: US (occurrence: US)
  Receive Date: 20161201
  Receipt Date: 20161201
  Transmission Date: 20170207
  Serious: No
  Sender: FDA-Public Use
  Company Number: None

PATIENT
  Age: 72 Year
  Sex: Female

DRUGS (7)
  1. FORTEO [Suspect]
     Active Substance: TERIPARATIDE
     Indication: ANTICOAGULANT THERAPY
  2. FORTEO [Suspect]
     Active Substance: TERIPARATIDE
     Indication: DRUG THERAPY
  3. FORTEO [Suspect]
     Active Substance: TERIPARATIDE
     Indication: RAYNAUD^S PHENOMENON
  4. FORTEO [Suspect]
     Active Substance: TERIPARATIDE
     Indication: CONNECTIVE TISSUE DISORDER
  5. FORTEO [Suspect]
     Active Substance: TERIPARATIDE
     Indication: INTERVERTEBRAL DISC DISORDER
  6. FORTEO [Suspect]
     Active Substance: TERIPARATIDE
     Indication: OSTEOPOROSIS
  7. FORTEO [Suspect]
     Active Substance: TERIPARATIDE
     Indication: NEURALGIA

REACTIONS (2)
  - Muscle spasms [None]
  - Peripheral nerve lesion [None]

NARRATIVE: CASE EVENT DATE: 20161201
